FAERS Safety Report 25375249 (Version 1)
Quarter: 2025Q2

REPORT INFORMATION
  Report Type: Spontaneous
  Country: FR (occurrence: FR)
  Receive Date: 20250529
  Receipt Date: 20250529
  Transmission Date: 20250716
  Serious: Yes (Hospitalization, Disabling)
  Sender: MYLAN
  Company Number: None

PATIENT
  Age: 59 Year
  Sex: Male
  Weight: 86 kg

DRUGS (8)
  1. KETOPROFEN [Suspect]
     Active Substance: KETOPROFEN
     Indication: Sciatic nerve injury
     Dosage: 100 MILLIGRAM, BID (MORNING AND EVENING) (BUCCAL TABLET)
     Dates: start: 202403, end: 202409
  2. KETOPROFEN [Suspect]
     Active Substance: KETOPROFEN
     Dosage: 100 MILLIGRAM, BID (MORNING AND EVENING) (BUCCAL TABLET)
     Route: 048
     Dates: start: 202403, end: 202409
  3. KETOPROFEN [Suspect]
     Active Substance: KETOPROFEN
     Dosage: 100 MILLIGRAM, BID (MORNING AND EVENING) (BUCCAL TABLET)
     Route: 048
     Dates: start: 202403, end: 202409
  4. KETOPROFEN [Suspect]
     Active Substance: KETOPROFEN
     Dosage: 100 MILLIGRAM, BID (MORNING AND EVENING) (BUCCAL TABLET)
     Dates: start: 202403, end: 202409
  5. NAPROXEN SODIUM [Suspect]
     Active Substance: NAPROXEN SODIUM
     Indication: Sciatica
     Dosage: 550 MILLIGRAM, BID (2/D) (BUCCAL TABLET)
     Dates: start: 20240304, end: 20240311
  6. NAPROXEN SODIUM [Suspect]
     Active Substance: NAPROXEN SODIUM
     Dosage: 550 MILLIGRAM, BID (2/D) (BUCCAL TABLET)
     Route: 048
     Dates: start: 20240304, end: 20240311
  7. NAPROXEN SODIUM [Suspect]
     Active Substance: NAPROXEN SODIUM
     Dosage: 550 MILLIGRAM, BID (2/D) (BUCCAL TABLET)
     Route: 048
     Dates: start: 20240304, end: 20240311
  8. NAPROXEN SODIUM [Suspect]
     Active Substance: NAPROXEN SODIUM
     Dosage: 550 MILLIGRAM, BID (2/D) (BUCCAL TABLET)
     Dates: start: 20240304, end: 20240311

REACTIONS (1)
  - Optic neuritis [Not Recovered/Not Resolved]

NARRATIVE: CASE EVENT DATE: 20240913
